FAERS Safety Report 12591852 (Version 1)
Quarter: 2016Q3

REPORT INFORMATION
  Report Type: Spontaneous
  Country: CA (occurrence: None)
  Receive Date: 20160725
  Receipt Date: 20160725
  Transmission Date: 20161109
  Serious: No
  Sender: FDA-Public Use
  Company Number: None

PATIENT
  Age: 53 Year
  Sex: Male
  Weight: 81.65 kg

DRUGS (3)
  1. FLAGYL [Suspect]
     Active Substance: METRONIDAZOLE\METRONIDAZOLE HYDROCHLORIDE
  2. DAILY MULTIVITAMIN [Concomitant]
     Active Substance: VITAMINS
  3. CIPROFLOXACIN. [Suspect]
     Active Substance: CIPROFLOXACIN
     Indication: DIVERTICULITIS
     Route: 048
     Dates: start: 20160509, end: 20160513

REACTIONS (4)
  - Paraesthesia [None]
  - Balance disorder [None]
  - Hypoaesthesia [None]
  - Burning sensation [None]

NARRATIVE: CASE EVENT DATE: 20160511
